FAERS Safety Report 5692962-X (Version None)
Quarter: 2008Q2

REPORT INFORMATION
  Report Type: 
  Country: None (occurrence: None)
  Receive Date: 20080402
  Receipt Date: 20080402
  Transmission Date: 20081010
  Serious: Yes (Hospitalization)
  Sender: FDA-Public Use
  Company Number: None

PATIENT
  Sex: Female
  Weight: 63.5036 kg

DRUGS (5)
  1. FORTAZ [Suspect]
     Indication: OSTEOPOROSIS
     Dosage: METERED DOSES OF DATE SQ
     Route: 058
     Dates: start: 20070930
  2. ROCEPHIN [Concomitant]
  3. LEVAQUIN [Concomitant]
  4. BACTRIM [Concomitant]
  5. TETRACYCLINE [Concomitant]

REACTIONS (3)
  - INJECTION SITE INFECTION [None]
  - INJECTION SITE MASS [None]
  - PHARMACEUTICAL PRODUCT COMPLAINT [None]
